FAERS Safety Report 7229114-8 (Version None)
Quarter: 2011Q1

REPORT INFORMATION
  Report Type: 
  Country: None (occurrence: None)
  Receive Date: 20110117
  Receipt Date: 20110105
  Transmission Date: 20110831
  Serious: Yes (Death, Other)
  Sender: FDA-Public Use
  Company Number: US-CELGENEUS-163-20785-10113268

PATIENT
  Sex: Male

DRUGS (1)
  1. THALOMID [Suspect]
     Indication: NON-HODGKIN'S LYMPHOMA
     Route: 048
     Dates: start: 20100919, end: 20101204

REACTIONS (3)
  - PNEUMONIA [None]
  - BONE MARROW FAILURE [None]
  - NON-HODGKIN'S LYMPHOMA [None]
